FAERS Safety Report 5380912-5 (Version None)
Quarter: 2007Q3

REPORT INFORMATION
  Report Type: 
  Country: None (occurrence: None)
  Receive Date: 20070702
  Receipt Date: 20060908
  Transmission Date: 20080115
  Serious: Yes (Life-Threatening)
  Sender: FDA-Public Use
  Company Number: SPV1-2006-00821

PATIENT
  Age: 48 Year
  Sex: Male

DRUGS (6)
  1. PENTASA [Suspect]
     Indication: COLITIS ULCERATIVE
     Dosage: 4G DAILY, ORAL
     Route: 048
     Dates: start: 20060510, end: 20060627
  2. NEXIUM [Suspect]
     Dosage: ORAL
     Route: 048
     Dates: start: 20060512, end: 20060627
  3. PREDNISOLONE SODIUM SULFOBENZOATE [Concomitant]
  4. POTASSIUM CHLORIDE [Concomitant]
  5. VITAMIN D [Concomitant]
  6. HYDROCORTISONE ACETATE            (HYDROCORTISONE ACETATE) [Concomitant]

REACTIONS (1)
  - AGRANULOCYTOSIS [None]
